FAERS Safety Report 9867543 (Version 2)
Quarter: 2014Q1

REPORT INFORMATION
  Report Type: Spontaneous
  Country: US (occurrence: US)
  Receive Date: 20140204
  Receipt Date: 20140204
  Transmission Date: 20141002
  Serious: No
  Sender: FDA-Public Use
  Company Number: US-GALDERMA-US13001267

PATIENT
  Age: 15 Year
  Sex: Female

DRUGS (6)
  1. EPIDUO (ADAPALENE, BENZOYL PEROXIDE) GEL 0.1% / 2.5% [Suspect]
     Indication: ACNE
     Route: 061
     Dates: start: 20130415, end: 20130417
  2. NEUTROGENA OIL FREE ACNE WASH [Concomitant]
     Indication: THERAPEUTIC SKIN CARE TOPICAL
     Route: 061
     Dates: start: 201302
  3. TEA TREE SKIN CLEANSING FACIAL WASH [Concomitant]
     Route: 061
  4. CLEAN AND CLEAR SALICYLIC ACID MOISTURIZER [Concomitant]
     Route: 061
  5. WITCH HAZEL AND ALOE THAYERS TONER [Concomitant]
     Route: 061
  6. PONDS WET CLEANSING TOWELETTER [Concomitant]
     Route: 061

REACTIONS (2)
  - Acne [Recovered/Resolved]
  - Drug ineffective [Recovered/Resolved]
